FAERS Safety Report 6982245-X (Version None)
Quarter: 2010Q3

REPORT INFORMATION
  Report Type: 
  Country: None (occurrence: None)
  Receive Date: 20100909
  Receipt Date: 20100824
  Transmission Date: 20110219
  Serious: Yes (Other)
  Sender: FDA-Public Use
  Company Number: AUR-APL-2010-02167

PATIENT
  Age: 64 Year
  Sex: Male
  Weight: 113.38 kg

DRUGS (10)
  1. HYDROCHLOROTHIAZIDE [Suspect]
     Dosage: 25MG, DAILY,
  2. TOVIAZ [Suspect]
     Indication: BLADDER DISORDER
     Dosage: 8MG, DAILY,
     Dates: start: 20100801
  3. XANAX [Suspect]
     Dosage: 1MG, DAILY,
  4. NORVASC [Suspect]
     Dosage: 10MG, DAILY,
  5. CARDURA [Suspect]
     Dosage: 2MG, NIGHTLY,
  6. PRISTIQ [Suspect]
     Indication: DEPRESSION
     Dosage: 50MG, DAILY, ORAL
     Route: 048
     Dates: start: 20100804
  7. MICARDIS [Suspect]
     Dosage: 80MG,
  8. ACETYLSALICYLIC ACID [Suspect]
     Dosage: 81MG,
  9. NEBIVOLOL [Suspect]
     Dosage: 5MG,
  10. NORCO [Suspect]
     Indication: PAIN

REACTIONS (7)
  - BLADDER DISORDER [None]
  - DRUG INEFFECTIVE [None]
  - DRUG INTERACTION [None]
  - DRY MOUTH [None]
  - DYSPHAGIA [None]
  - URINARY HESITATION [None]
  - VISION BLURRED [None]
